FAERS Safety Report 12166055 (Version 1)
Quarter: 2016Q1

REPORT INFORMATION
  Report Type: Report from Study
  Country: AU (occurrence: AU)
  Receive Date: 20160309
  Receipt Date: 20160309
  Transmission Date: 20160526
  Serious: Yes (Hospitalization)
  Sender: FDA-Public Use
  Company Number: AU-BIOGEN-2016BI00195372

PATIENT
  Age: 44 Year
  Sex: Female

DRUGS (3)
  1. PLEGRIDY [Suspect]
     Active Substance: PEGINTERFERON BETA-1A
     Route: 058
  2. LYRICA [Concomitant]
     Active Substance: PREGABALIN
     Indication: PRODUCT USED FOR UNKNOWN INDICATION
  3. PLEGRIDY [Suspect]
     Active Substance: PEGINTERFERON BETA-1A
     Indication: MULTIPLE SCLEROSIS
     Route: 058
     Dates: start: 20150514

REACTIONS (8)
  - Fall [Recovered/Resolved]
  - Glossodynia [Unknown]
  - Injection site reaction [Not Recovered/Not Resolved]
  - Anal incontinence [Unknown]
  - Malaise [Recovered/Resolved]
  - Multiple sclerosis relapse [Recovered/Resolved]
  - Urinary incontinence [Unknown]
  - Blood glucose fluctuation [Unknown]

NARRATIVE: CASE EVENT DATE: 2016
